FAERS Safety Report 14182365 (Version 1)
Quarter: 2017Q4

REPORT INFORMATION
  Report Type: Spontaneous
  Country: IN (occurrence: IN)
  Receive Date: 20171113
  Receipt Date: 20171113
  Transmission Date: 20180321
  Serious: Yes (Other)
  Sender: FDA-Public Use
  Company Number: IN-CPL-000081

PATIENT
  Age: 4 Year
  Sex: Female
  Weight: 24 kg

DRUGS (1)
  1. OFLOXACIN. [Suspect]
     Active Substance: OFLOXACIN
     Indication: GASTROENTERITIS
     Dosage: 1/4 TABLET TWICE DAILY
     Route: 048

REACTIONS (2)
  - Delirium [Recovered/Resolved]
  - Incorrect dose administered [Unknown]
